FAERS Safety Report 5162954-8 (Version None)
Quarter: 2006Q4

REPORT INFORMATION
  Report Type: 
  Country: None (occurrence: None)
  Receive Date: 20061201
  Receipt Date: 20061120
  Transmission Date: 20070319
  Serious: Yes (Death)
  Sender: FDA-Public Use
  Company Number: JP-BRISTOL-MYERS SQUIBB COMPANY-13593868

PATIENT
  Age: 56 Year
  Sex: Male

DRUGS (3)
  1. ABILIFY [Suspect]
     Indication: SCHIZOPHRENIA
     Route: 048
     Dates: start: 20060704, end: 20061010
  2. CLONAZEPAM [Suspect]
     Route: 048
     Dates: start: 20060704, end: 20061010
  3. BROMAZEPAM [Suspect]
     Route: 048
     Dates: start: 20060704, end: 20061010

REACTIONS (1)
  - SUDDEN DEATH [None]
